FAERS Safety Report 6144669-2 (Version None)
Quarter: 2009Q2

REPORT INFORMATION
  Report Type: 
  Country: None (occurrence: None)
  Receive Date: 20090406
  Receipt Date: 20090331
  Transmission Date: 20091009
  Serious: Yes (Other)
  Sender: FDA-Public Use
  Company Number: B0543386A

PATIENT
  Sex: Male
  Weight: 55 kg

DRUGS (7)
  1. SERETIDE [Suspect]
     Indication: DRUG USE FOR UNKNOWN INDICATION
     Dosage: 250MCG TWICE PER DAY
     Route: 055
     Dates: start: 20081003, end: 20081017
  2. ONON [Concomitant]
     Route: 048
  3. ALEGYSAL [Concomitant]
     Route: 065
  4. PARIET [Concomitant]
     Route: 048
  5. CELESTAMINE [Concomitant]
     Route: 048
  6. MUCOSTA [Concomitant]
  7. UNKNOWN [Concomitant]
     Route: 045

REACTIONS (7)
  - DRY MOUTH [None]
  - DRY THROAT [None]
  - EATING DISORDER [None]
  - ORAL CANDIDIASIS [None]
  - ORAL FUNGAL INFECTION [None]
  - ORAL PAIN [None]
  - TINEA INFECTION [None]
